FAERS Safety Report 6809704-4 (Version None)
Quarter: 2010Q2

REPORT INFORMATION
  Report Type: 
  Country: None (occurrence: None)
  Receive Date: 20100625
  Receipt Date: 20100617
  Transmission Date: 20101027
  Serious: Yes (Hospitalization)
  Sender: FDA-Public Use
  Company Number: 7008153

PATIENT
  Age: 24 Year
  Sex: Female

DRUGS (4)
  1. GONAL-F [Suspect]
     Indication: DRUG USE FOR UNKNOWN INDICATION
  2. CRINONE [Suspect]
     Dosage: VAGINAL
     Route: 067
  3. LUCRIN (LEUPRORELIN ACETATE) [Suspect]
     Indication: DRUG USE FOR UNKNOWN INDICATION
  4. PREGNYL [Suspect]
     Indication: DRUG USE FOR UNKNOWN INDICATION
     Dosage: INTRAMUSCULAR
     Route: 030

REACTIONS (4)
  - ABDOMINAL PAIN LOWER [None]
  - DRUG EXPOSURE DURING PREGNANCY [None]
  - TWIN PREGNANCY [None]
  - VAGINAL HAEMORRHAGE [None]
